FAERS Safety Report 19207243 (Version 2)
Quarter: 2021Q2

REPORT INFORMATION
  Report Type: Spontaneous
  Country: JP (occurrence: JP)
  Receive Date: 20210501
  Receipt Date: 20210521
  Transmission Date: 20210717
  Serious: Yes (Death)
  Sender: FDA-Public Use
  Company Number: JP-ASTRAZENECA-2021A363361

PATIENT
  Age: 88 Year
  Sex: Female

DRUGS (1)
  1. LOKELMA [Suspect]
     Active Substance: SODIUM ZIRCONIUM CYCLOSILICATE
     Indication: PANCREATIC CARCINOMA
     Dosage: DOSE UNKNOWN
     Route: 048

REACTIONS (1)
  - Pancreatic carcinoma stage IV [Fatal]
